FAERS Safety Report 14274594 (Version 2)
Quarter: 2019Q3

REPORT INFORMATION
  Report Type: Report from Study
  Country: None (occurrence: BR)
  Receive Date: 20171211
  Receipt Date: 20190726
  Transmission Date: 20191004
  Serious: Yes (Disabling, Other)
  Sender: FDA-Public Use
  Company Number: BR-ABBVIE-17K-020-2187936-00

PATIENT
  Age: 50 Year
  Sex: Male
  Weight: 82 kg

DRUGS (3)
  1. HUMIRA [Suspect]
     Active Substance: ADALIMUMAB
     Indication: ANKYLOSING SPONDYLITIS
     Route: 058
     Dates: start: 20161130, end: 201807
  2. HUMIRA [Suspect]
     Active Substance: ADALIMUMAB
     Route: 058
     Dates: start: 201901, end: 201901
  3. HUMIRA [Suspect]
     Active Substance: ADALIMUMAB
     Route: 058
     Dates: start: 201905

REACTIONS (9)
  - Breast operation [Recovering/Resolving]
  - Lung disorder [Unknown]
  - Suture rupture [Unknown]
  - Cough [Unknown]
  - Gastric disorder [Unknown]
  - Vascular graft [Recovering/Resolving]
  - Blood cholesterol abnormal [Unknown]
  - Asthenia [Unknown]
  - Angina pectoris [Unknown]

NARRATIVE: CASE EVENT DATE: 20171127
